FAERS Safety Report 8853450 (Version 5)
Quarter: 2013Q2

REPORT INFORMATION
  Report Type: Report from Study
  Country: JP (occurrence: JP)
  Receive Date: 20121022
  Receipt Date: 20130604
  Transmission Date: 20140414
  Serious: Yes (Death, Other)
  Sender: FDA-Public Use
  Company Number: JP-GLAXOSMITHKLINE-B0838955A

PATIENT
  Age: 70 Year
  Sex: Male
  Weight: 53 kg

DRUGS (39)
  1. SAMTIREL [Suspect]
     Indication: ANTIFUNGAL PROPHYLAXIS
     Dosage: 1500MG PER DAY
     Route: 048
     Dates: start: 20120713, end: 20120719
  2. SAMTIREL [Suspect]
     Indication: ANTIFUNGAL PROPHYLAXIS
     Dosage: 1500MG PER DAY
     Route: 048
     Dates: start: 20120725, end: 20120913
  3. SAMTIREL [Suspect]
     Indication: ANTIFUNGAL PROPHYLAXIS
     Dosage: 750MG PER DAY
     Route: 048
     Dates: start: 20120928, end: 20121013
  4. CRAVIT [Suspect]
     Indication: PRODUCT USED FOR UNKNOWN INDICATION
     Dosage: 500MG PER DAY
     Route: 048
     Dates: start: 20120808, end: 20120811
  5. FLUCONAZOLE [Suspect]
     Indication: PRODUCT USED FOR UNKNOWN INDICATION
     Dosage: 200MG PER DAY
     Route: 048
     Dates: start: 20120906, end: 20120911
  6. FOSCAVIR [Suspect]
     Indication: PRODUCT USED FOR UNKNOWN INDICATION
     Dosage: 4560MG PER DAY
     Route: 042
     Dates: start: 20121012, end: 20121014
  7. CYLOCIDE [Suspect]
     Indication: ACUTE MYELOID LEUKAEMIA
     Dosage: 110MG PER DAY
     Route: 042
     Dates: start: 20120522, end: 20120528
  8. CYLOCIDE [Suspect]
     Indication: ACUTE MYELOID LEUKAEMIA
     Dosage: 250MG PER DAY
     Route: 042
     Dates: start: 20120625, end: 20120629
  9. OMEPRAL [Concomitant]
     Dosage: 20MG PER DAY
     Route: 048
     Dates: start: 20120625, end: 20121013
  10. LOXOPROFEN [Concomitant]
     Dosage: 60MG PER DAY
     Route: 048
     Dates: start: 20120718, end: 20120718
  11. LOXOPROFEN [Concomitant]
     Dosage: 60MG PER DAY
     Route: 048
     Dates: start: 20120805, end: 20120805
  12. LOXOPROFEN [Concomitant]
     Dosage: 60MG TWICE PER DAY
     Route: 048
     Dates: start: 20120806, end: 20120806
  13. LOXOPROFEN [Concomitant]
     Dosage: 6MG PER DAY
     Route: 048
     Dates: start: 20120807, end: 20120808
  14. LOXOPROFEN [Concomitant]
     Dosage: 60MG PER DAY
     Route: 048
     Dates: start: 20120821, end: 20120821
  15. LOXOPROFEN [Concomitant]
     Dosage: 60MG PER DAY
     Route: 048
     Dates: start: 20120823, end: 20120823
  16. LOXOPROFEN [Concomitant]
     Dosage: 60MG PER DAY
     Route: 048
     Dates: start: 20120901, end: 20120901
  17. LOXOPROFEN [Concomitant]
     Dosage: 60MG PER DAY
     Route: 048
     Dates: start: 20120903, end: 20120903
  18. LOXOPROFEN [Concomitant]
     Dosage: 60MG PER DAY
     Route: 048
     Dates: start: 20121004, end: 20121008
  19. LOXOPROFEN [Concomitant]
     Dosage: 60MG TWICE PER DAY
     Route: 048
     Dates: start: 20121009, end: 20121009
  20. LOXOPROFEN [Concomitant]
     Dosage: 60MG PER DAY
     Route: 048
     Dates: start: 20121010, end: 20121010
  21. LOXOPROFEN [Concomitant]
     Dosage: 60MG PER DAY
     Route: 048
     Dates: start: 20121011, end: 20121011
  22. PREDONINE [Concomitant]
     Dosage: 20MG PER DAY
     Route: 048
     Dates: start: 20120726, end: 20120730
  23. EMEND [Concomitant]
     Dosage: 125MG PER DAY
     Route: 048
     Dates: start: 20120726, end: 20120726
  24. EMEND [Concomitant]
     Dosage: 80MG PER DAY
     Route: 048
     Dates: start: 20120727, end: 20120728
  25. MAGMITT [Concomitant]
     Dosage: 330MG THREE TIMES PER DAY
     Route: 048
     Dates: start: 20120727, end: 20121004
  26. PRIMPERAN [Concomitant]
     Dosage: 5MG PER DAY
     Route: 048
     Dates: start: 20120729, end: 20120729
  27. PRIMPERAN [Concomitant]
     Dosage: 5MG PER DAY
     Route: 048
     Dates: start: 20120731, end: 20120731
  28. PRIMPERAN [Concomitant]
     Dosage: 5MG PER DAY
     Route: 048
     Dates: start: 20120901, end: 20120901
  29. PRIMPERAN [Concomitant]
     Dosage: 5MG TWICE PER DAY
     Route: 048
     Dates: start: 20120902, end: 20120902
  30. NIPOLAZIN [Concomitant]
     Dosage: 30MG PER DAY
     Route: 048
     Dates: start: 20120729, end: 20120729
  31. NIPOLAZIN [Concomitant]
     Dosage: 30MG PER DAY
     Route: 048
     Dates: start: 20120731, end: 20120731
  32. NIPOLAZIN [Concomitant]
     Dosage: 30MG PER DAY
     Route: 048
     Dates: start: 20120806, end: 20120806
  33. NIPOLAZIN [Concomitant]
     Dosage: 30MG PER DAY
     Route: 048
     Dates: start: 20120813, end: 20120813
  34. NIPOLAZIN [Concomitant]
     Dosage: 30MG PER DAY
     Route: 048
     Dates: start: 20120817, end: 20120817
  35. VFEND [Concomitant]
     Dosage: 300MG TWICE PER DAY
     Route: 048
     Dates: start: 20120912, end: 20120912
  36. VFEND [Concomitant]
     Dosage: 150MG TWICE PER DAY
     Route: 048
     Dates: start: 20120913, end: 20121010
  37. MEROPEN [Concomitant]
     Dosage: 1G TWICE PER DAY
     Route: 042
     Dates: start: 20121006, end: 20121014
  38. DAUNORUBICIN HYDROCHLORIDE [Concomitant]
     Indication: ACUTE MYELOID LEUKAEMIA
     Dosage: 55MG PER DAY
     Route: 042
     Dates: start: 20120522, end: 20120526
  39. MITOXANTRONE HYDROCHLORIDE [Concomitant]
     Indication: ACUTE MYELOID LEUKAEMIA
     Dosage: 9MG PER DAY
     Route: 042
     Dates: start: 20120625, end: 20120627

REACTIONS (5)
  - Renal impairment [Recovered/Resolved]
  - Stomatitis [Recovered/Resolved]
  - Hypoalbuminaemia [Fatal]
  - Azotaemia [Not Recovered/Not Resolved]
  - Hypercreatininaemia [Not Recovered/Not Resolved]
